FAERS Safety Report 15289393 (Version 1)
Quarter: 2018Q3

REPORT INFORMATION
  Report Type: Spontaneous
  Country: US (occurrence: US)
  Receive Date: 20180803
  Receipt Date: 20180803
  Transmission Date: 20181010
  Serious: Yes (Other)
  Sender: FDA-Public Use
  Company Number: None

PATIENT
  Age: 49 Year
  Sex: Female
  Weight: 88 kg

DRUGS (6)
  1. FAMOTIDINE 20MG IV PUSH X1 PRIOR TO CHEMO [Concomitant]
  2. DEXAMETHASONE 12MG IVPB X1 PRIOR TO CHEMO [Concomitant]
  3. PALONOSETRON 0.25MG IV PUSH X1 PRIOR TO CHEMO [Concomitant]
  4. CINVANTI [Suspect]
     Active Substance: APREPITANT
     Indication: PROPHYLAXIS OF NAUSEA AND VOMITING
     Route: 042
     Dates: start: 20180727, end: 20180727
  5. DEXAMETHASONE 8MG PO DAILY ON DAYS 2 AND 3 FOLLOWING CHEMO [Concomitant]
  6. DIPHENHYDRAMINE 25MG IV PUSH X1 PRIOR TO CHEMO [Concomitant]

REACTIONS (2)
  - Nausea [None]
  - Vomiting [None]

NARRATIVE: CASE EVENT DATE: 20180730
